FAERS Safety Report 11938831 (Version 1)
Quarter: 2016Q1

REPORT INFORMATION
  Report Type: Report from Study
  Country: FR (occurrence: IN)
  Receive Date: 20160122
  Receipt Date: 20160122
  Transmission Date: 20160526
  Serious: Yes (Other)
  Sender: FDA-Public Use
  Company Number: FR-009507513-1601IND005945

PATIENT
  Sex: Female

DRUGS (2)
  1. INTERFERON ALFA-2B [Suspect]
     Active Substance: INTERFERON ALFA-2B
     Indication: CERVIX CARCINOMA STAGE III
     Dosage: 3 X 10^6, TIW, 3 TIMES A WEEK FOR 4 WEEKS, STARTING FROM DAY 1 OF EBRT
     Route: 058
  2. ISOTRETINOIN [Suspect]
     Active Substance: ISOTRETINOIN
     Indication: CERVIX CARCINOMA STAGE III
     Dosage: 40 MG (DIVIDED INTO 2 DOSES) DAILY, FOR 30 DAYS STARTING ON DAY 1 OF EBRT RADIATION
     Route: 048

REACTIONS (1)
  - Skin toxicity [Unknown]
